FAERS Safety Report 7610473-9 (Version None)
Quarter: 2011Q3

REPORT INFORMATION
  Report Type: 
  Country: None (occurrence: None)
  Receive Date: 20110715
  Receipt Date: 20081016
  Transmission Date: 20111222
  Serious: Yes (Other)
  Sender: FDA-Public Use
  Company Number: US-BAYER-200836279NA

PATIENT
  Age: 45 Year
  Sex: Female
  Weight: 78.458 kg

DRUGS (9)
  1. ENALAPRIL MALEATE [Concomitant]
     Dosage: UNK
     Route: 048
     Dates: start: 20040114
  2. TRASYLOL [Suspect]
     Indication: PRODUCT USED FOR UNKNOWN INDICATION
     Dosage: 200ML X3 [PER BILLING RECORDS]
     Route: 042
     Dates: start: 20040114
  3. POTASSIUM [Concomitant]
     Dosage: UNK
     Route: 048
     Dates: start: 20040114
  4. ACETYLSALICYLIC ACID SRT [Concomitant]
     Dosage: UNK
     Route: 048
     Dates: start: 20040114
  5. TRASYLOL [Suspect]
     Dosage: 200 ML PUMP PRIME
     Route: 042
     Dates: start: 20040114
  6. METOPROLOL TARTRATE [Concomitant]
     Dosage: UNK
     Route: 048
     Dates: start: 20040114
  7. LASIX [Concomitant]
     Dosage: UNK
     Route: 048
     Dates: start: 20040114
  8. ALBUTEROL SULFATE AUTOHALER [Concomitant]
     Dosage: UNK, INHALATION AGENT
     Route: 055
     Dates: start: 20040114, end: 20040223
  9. ADVAIR DISKUS 100/50 [Concomitant]
     Dosage: UNK, INHALATION AGENT
     Route: 055
     Dates: start: 20040114, end: 20040223

REACTIONS (11)
  - ANHEDONIA [None]
  - STRESS [None]
  - ANXIETY [None]
  - FEAR [None]
  - UNEVALUABLE EVENT [None]
  - INJURY [None]
  - DEPRESSION [None]
  - MYOCARDIAL INFARCTION [None]
  - PAIN [None]
  - SWELLING [None]
  - EMOTIONAL DISTRESS [None]
